FAERS Safety Report 11172297 (Version 4)
Quarter: 2015Q2

REPORT INFORMATION
  Report Type: Report from Study
  Country: CA (occurrence: CA)
  Receive Date: 20150608
  Receipt Date: 20150618
  Transmission Date: 20150821
  Serious: Yes (Disabling)
  Sender: FDA-Public Use
  Company Number: CA-ACTELION-A-NJ2015-118744

PATIENT
  Age: 65 Year
  Sex: Female
  Weight: 79.37 kg

DRUGS (20)
  1. VELETRI [Suspect]
     Active Substance: EPOPROSTENOL
     Indication: PULMONARY ARTERIAL HYPERTENSION
     Dosage: 3.6ML/HR
     Route: 042
     Dates: start: 20140915
  2. SYNTHROID [Concomitant]
     Active Substance: LEVOTHYROXINE SODIUM
  3. CRESTOR [Concomitant]
     Active Substance: ROSUVASTATIN CALCIUM
  4. FOLIC ACID. [Concomitant]
     Active Substance: FOLIC ACID
  5. OXYGEN. [Concomitant]
     Active Substance: OXYGEN
     Dosage: 5 L, PER MIN
  6. CODEINE CONTIN [Concomitant]
     Active Substance: CODEINE SULFATE
  7. NEXIUM [Concomitant]
     Active Substance: ESOMEPRAZOLE MAGNESIUM
  8. WARFARIN [Concomitant]
     Active Substance: WARFARIN
  9. VITAMIN B COMPLEX [Concomitant]
     Active Substance: CYANOCOBALAMIN\DEXPANTHENOL\NIACINAMIDE\PYRIDOXINE HYDROCHLORIDE\RIBOFLAVIN 5^-PHOSPHATE SODIUM\THIAMINE HYDROCHLORIDE\VITAMIN B COMPLEX
  10. LASIX [Concomitant]
     Active Substance: FUROSEMIDE
     Dosage: 80 MG, UNK
  11. REVATIO [Suspect]
     Active Substance: SILDENAFIL CITRATE
     Indication: PULMONARY ARTERIAL HYPERTENSION
     Dosage: 20 MG, TID
     Route: 065
     Dates: start: 20091203
  12. OXYGEN. [Concomitant]
     Active Substance: OXYGEN
     Dosage: 3 L/MIN, UNK
  13. ALDACTONE [Concomitant]
     Active Substance: SPIRONOLACTONE
     Dosage: 12.5 MG, UNK
  14. NOVOLOG [Concomitant]
     Active Substance: INSULIN ASPART
  15. SLOW-K [Concomitant]
     Active Substance: POTASSIUM CHLORIDE
  16. GLYBURIDE. [Concomitant]
     Active Substance: GLYBURIDE
  17. IRON [Concomitant]
     Active Substance: IRON
  18. TYLENOL WITH CODEINE [Concomitant]
     Active Substance: ACETAMINOPHEN\CODEINE PHOSPHATE
  19. LANTUS [Concomitant]
     Active Substance: INSULIN GLARGINE
  20. VITAMIN B12 [Concomitant]
     Active Substance: CYANOCOBALAMIN

REACTIONS (6)
  - No therapeutic response [Not Recovered/Not Resolved]
  - Weight decreased [Not Recovered/Not Resolved]
  - Headache [Not Recovered/Not Resolved]
  - Oxygen saturation decreased [Not Recovered/Not Resolved]
  - Nausea [Not Recovered/Not Resolved]
  - Frustration [Not Recovered/Not Resolved]
